FAERS Safety Report 7938356-5 (Version None)
Quarter: 2011Q4

REPORT INFORMATION
  Report Type: 
  Country: None (occurrence: None)
  Receive Date: 20111123
  Receipt Date: 20111122
  Transmission Date: 20120403
  Serious: Yes (Hospitalization)
  Sender: FDA-Public Use
  Company Number: US-VERTEX PHARMACEUTICALS INC.-AE-2011-002094

PATIENT
  Sex: Male

DRUGS (5)
  1. INTERFERON [Concomitant]
     Dates: start: 20111003
  2. RIBAVIRIN [Concomitant]
     Indication: HEPATITIS C
     Dates: start: 20110901, end: 20111001
  3. INCIVEK [Suspect]
     Indication: HEPATITIS C
     Dates: start: 20110901, end: 20111001
  4. INTERFERON [Concomitant]
     Indication: HEPATITIS C
     Dates: start: 20110901, end: 20111001
  5. RIBAVIRIN [Concomitant]
     Dates: start: 20111003

REACTIONS (2)
  - PYREXIA [None]
  - RASH [None]
